FAERS Safety Report 9938758 (Version 1)
Quarter: 2014Q1

REPORT INFORMATION
  Report Type: Spontaneous
  Country: US (occurrence: US)
  Receive Date: 20140303
  Receipt Date: 20140303
  Transmission Date: 20141002
  Serious: No
  Sender: FDA-Public Use
  Company Number: US-PFIZER INC-2014055393

PATIENT
  Age: 64 Year
  Sex: Female
  Weight: 53.06 kg

DRUGS (3)
  1. LYRICA [Suspect]
     Indication: PAIN
     Dosage: UNK
     Dates: start: 2012
  2. MOBIC [Concomitant]
     Indication: INFLAMMATION
     Dosage: 15 MG, 1X/DAY
  3. CALCIUM CITRATE + VITAMIN D [Concomitant]
     Indication: OSTEOPOROSIS
     Dosage: UNK

REACTIONS (1)
  - Expired drug administered [Unknown]
